FAERS Safety Report 8776873 (Version 3)
Quarter: 2014Q2

REPORT INFORMATION
  Report Type: Spontaneous
  Country: US (occurrence: US)
  Receive Date: 20120911
  Receipt Date: 20131024
  Transmission Date: 20141212
  Serious: No
  Sender: FDA-Public Use
  Company Number: US-PFIZER INC-2012223256

PATIENT
  Age: 60 Year
  Sex: Female
  Weight: 45.35 kg

DRUGS (11)
  1. ADVIL PM [Suspect]
     Indication: PAIN IN EXTREMITY
     Dosage: 400 MG,DAILY
     Route: 048
     Dates: start: 20120903, end: 20120906
  2. ADVIL PM [Suspect]
     Indication: MUSCLE SPASMS
  3. ADVIL PM [Suspect]
     Indication: SLEEP DISORDER
  4. LISINOPRIL [Concomitant]
     Indication: HYPERTENSION
     Dosage: 10 MG, DAILY
  5. LISINOPRIL [Concomitant]
     Indication: FLUID RETENTION
  6. LISINOPRIL [Concomitant]
     Indication: CARDIAC DISORDER
  7. POTASSIUM [Concomitant]
     Dosage: 10 MEQ, DAILY
  8. CARISOPRODOL [Concomitant]
     Indication: SLEEP DISORDER
     Dosage: 350 MG, DAILY
  9. BUDEPRION [Concomitant]
     Indication: ANTIDEPRESSANT THERAPY
     Dosage: 150 MG, 2X/DAY
  10. FUROSEMIDE [Concomitant]
     Indication: FLUID RETENTION
     Dosage: 40 MG, DAILY
  11. FUROSEMIDE [Concomitant]
     Indication: CARDIAC DISORDER

REACTIONS (7)
  - Nausea [Recovered/Resolved]
  - Decreased appetite [Recovered/Resolved]
  - Dysgeusia [Recovered/Resolved]
  - Dyspepsia [Recovered/Resolved]
  - Dry mouth [Recovered/Resolved]
  - Toxicity to various agents [Unknown]
  - Weight decreased [Unknown]
